FAERS Safety Report 4827810-0 (Version None)
Quarter: 2005Q4

REPORT INFORMATION
  Report Type: 
  Country: None (occurrence: None)
  Receive Date: 20051114
  Receipt Date: 20051114
  Transmission Date: 20060501
  Serious: Yes (Other)
  Sender: FDA-Public Use
  Company Number: None

PATIENT

DRUGS (1)
  1. ENDOSOL EXTRA [Suspect]
     Indication: CATARACT OPERATION
     Dates: start: 20051013, end: 20051013

REACTIONS (2)
  - CATARACT OPERATION COMPLICATION [None]
  - EYE INFLAMMATION [None]
